FAERS Safety Report 9537291 (Version 3)
Quarter: 2014Q2

REPORT INFORMATION
  Report Type: Report from Study
  Country: US (occurrence: US)
  Receive Date: 20130919
  Receipt Date: 20140610
  Transmission Date: 20141212
  Serious: Yes (Death, Hospitalization)
  Sender: FDA-Public Use
  Company Number: PHEH2013US019584

PATIENT
  Sex: Female

DRUGS (2)
  1. TOBI [Suspect]
     Indication: CHRONIC OBSTRUCTIVE PULMONARY DISEASE
     Dosage: 300 MG, BID (28 DAYS ON AN 28 DAYS OFF)
     Route: 055
     Dates: start: 20130221
  2. TOBI [Suspect]
     Indication: IMMUNOGLOBULINS DECREASED

REACTIONS (1)
  - Chronic obstructive pulmonary disease [Fatal]
